FAERS Safety Report 25926555 (Version 1)
Quarter: 2025Q4

REPORT INFORMATION
  Report Type: Spontaneous
  Country: US (occurrence: None)
  Receive Date: 20251013
  Receipt Date: 20251013
  Transmission Date: 20260118
  Serious: Yes (Other)
  Sender: FDA-CTU
  Company Number: None

PATIENT
  Age: 28 Year
  Sex: Male
  Weight: 67.5 kg

DRUGS (1)
  1. .DELTA.9-TETRAHYDROCANNABINOLIC ACID\HERBALS [Suspect]
     Active Substance: .DELTA.9-TETRAHYDROCANNABINOLIC ACID\HERBALS
     Dosage: OTHER QUANTITY : 1 JAR;?FREQUENCY : 3 TIMES A DAY;?
     Route: 055
     Dates: start: 20251009

REACTIONS (3)
  - Tremor [None]
  - Balance disorder [None]
  - Muscle twitching [None]

NARRATIVE: CASE EVENT DATE: 20251012
